FAERS Safety Report 5765644-3 (Version None)
Quarter: 2008Q2

REPORT INFORMATION
  Report Type: 
  Country: None (occurrence: None)
  Receive Date: 20080606
  Receipt Date: 20080606
  Transmission Date: 20081010
  Serious: Yes (Hospitalization)
  Sender: FDA-Public Use
  Company Number: None

PATIENT
  Age: 74 Year
  Sex: Male
  Weight: 88.45 kg

DRUGS (2)
  1. CIPRO IN DEXTROSE 5% [Suspect]
     Indication: URINARY TRACT INFECTION
     Dosage: 200 MG ONCE IV
     Route: 042
     Dates: start: 20071118, end: 20071119
  2. GLIPIZIDE [Suspect]
     Indication: DIABETES MELLITUS
     Dosage: 2.5MG MG EVERY DAY PO
     Route: 048
     Dates: start: 20070613, end: 20071201

REACTIONS (6)
  - CARBON DIOXIDE DECREASED [None]
  - CHEST PAIN [None]
  - HYPOGLYCAEMIA [None]
  - PYREXIA [None]
  - RENAL FAILURE ACUTE [None]
  - URINARY TRACT INFECTION [None]
